FAERS Safety Report 14670028 (Version 3)
Quarter: 2018Q2

REPORT INFORMATION
  Report Type: Spontaneous
  Country: US (occurrence: US)
  Receive Date: 20180322
  Receipt Date: 20180601
  Transmission Date: 20180711
  Serious: No
  Sender: FDA-Public Use
  Company Number: US-PFIZER INC-2018119631

PATIENT
  Age: 39 Year
  Sex: Male
  Weight: 91.17 kg

DRUGS (3)
  1. ERTAPENEM. [Concomitant]
     Active Substance: ERTAPENEM SODIUM
     Indication: DECUBITUS ULCER
     Dosage: 1 G, 1X/DAY, (100ML NORMAL SALINE, 30 MINUTE INFUSION)
     Dates: start: 20180209, end: 20180315
  2. DAPTOMYCIN. [Suspect]
     Active Substance: DAPTOMYCIN
     Indication: DECUBITUS ULCER
     Dosage: 500 MG, 1X/DAY, PUSH IN 10ML OF SALINE
     Route: 042
     Dates: start: 20180209, end: 20180223
  3. DAPTOMYCIN. [Suspect]
     Active Substance: DAPTOMYCIN
     Indication: OSTEOMYELITIS

REACTIONS (2)
  - Chills [Recovered/Resolved]
  - Tremor [Recovered/Resolved]

NARRATIVE: CASE EVENT DATE: 20180213
